FAERS Safety Report 9057881 (Version 1)
Quarter: 2013Q1

REPORT INFORMATION
  Report Type: Spontaneous
  Country: US (occurrence: None)
  Receive Date: 20130204
  Receipt Date: 20130204
  Transmission Date: 20140127
  Serious: Yes (Disabling)
  Sender: FDA-Public Use
  Company Number: None

PATIENT
  Sex: Female
  Weight: 136.08 kg

DRUGS (1)
  1. TINIDAZOLE [Suspect]
     Indication: LYME DISEASE
     Route: 048
     Dates: start: 20130126, end: 20130201

REACTIONS (1)
  - Deafness unilateral [None]
